FAERS Safety Report 8951165 (Version 1)
Quarter: 2012Q4

REPORT INFORMATION
  Report Type: 
  Country: US (occurrence: None)
  Receive Date: 20121204
  Receipt Date: 20121204
  Transmission Date: 20130627
  Serious: Yes (Hospitalization)
  Sender: FDA-Public Use
  Company Number: None

PATIENT
  Sex: Female
  Weight: 106.5 kg

DRUGS (15)
  1. BEVACIZUMAB [Suspect]
  2. PEMETREXED [Suspect]
  3. ADVAI DISKUS [Concomitant]
  4. B-12 TR [Concomitant]
  5. CAFFEINE TABLETS [Concomitant]
  6. CLOTRIMAZOLE [Concomitant]
  7. CYMBALTA [Concomitant]
  8. DOXYCYCLINE HYCLATE [Concomitant]
  9. FOLIC ACID [Concomitant]
  10. IBUPROFEN [Concomitant]
  11. LORAZEPAM [Concomitant]
  12. MAGNESIUM [Concomitant]
  13. METOCLOPRAMIDE HCL [Concomitant]
  14. VITAMIN B-1 [Concomitant]
  15. VITAMIN D3 [Concomitant]

REACTIONS (2)
  - Cellulitis [None]
  - Skin infection [None]
